FAERS Safety Report 11230223 (Version 1)
Quarter: 2015Q2

REPORT INFORMATION
  Report Type: Spontaneous
  Country: US (occurrence: None)
  Receive Date: 20150630
  Receipt Date: 20150630
  Transmission Date: 20150821
  Serious: No
  Sender: FDA-Public Use
  Company Number: None

PATIENT

DRUGS (1)
  1. CIPROFLOXACIN HCL 500 MG TAB DR. REDDY^S LAB [Suspect]
     Active Substance: CIPROFLOXACIN HYDROCHLORIDE
     Indication: URINARY TRACT INFECTION
     Route: 048
     Dates: start: 20150619, end: 20150619

REACTIONS (6)
  - Hypoaesthesia oral [None]
  - Paraesthesia [None]
  - Dystonia [None]
  - Muscle disorder [None]
  - Paraesthesia oral [None]
  - Hypoaesthesia [None]
